FAERS Safety Report 21296177 (Version 1)
Quarter: 2022Q3

REPORT INFORMATION
  Report Type: Spontaneous
  Country: DE (occurrence: DE)
  Receive Date: 20220906
  Receipt Date: 20220906
  Transmission Date: 20221027
  Serious: Yes (Death)
  Sender: FDA-Public Use
  Company Number: None

PATIENT
  Age: 66 Year
  Sex: Male
  Weight: 78 kg

DRUGS (1)
  1. PEMBROLIZUMAB [Suspect]
     Active Substance: PEMBROLIZUMAB
     Indication: Lower respiratory tract infection
     Dosage: PEMBROLIZUMAB 200MG
     Route: 042
     Dates: start: 20220615, end: 20220817

REACTIONS (6)
  - Hepatic failure [Fatal]
  - Colitis ulcerative [Fatal]
  - Pancytopenia [Fatal]
  - Myositis [Fatal]
  - Gastrointestinal haemorrhage [Fatal]
  - Renal failure [Fatal]

NARRATIVE: CASE EVENT DATE: 20220818
